FAERS Safety Report 11785553 (Version 1)
Quarter: 2015Q4

REPORT INFORMATION
  Report Type: Spontaneous
  Country: US (occurrence: US)
  Receive Date: 20151130
  Receipt Date: 20151130
  Transmission Date: 20160305
  Serious: Yes (Other)
  Sender: FDA-Public Use
  Company Number: US-DRREDDYS-USA/USA/15/0054314

PATIENT
  Age: 40 Year
  Sex: Female

DRUGS (1)
  1. MINOCYCLINE\MINOCYCLINE HYDROCHLORIDE [Suspect]
     Active Substance: MINOCYCLINE\MINOCYCLINE HYDROCHLORIDE
     Indication: ACNE
     Route: 065

REACTIONS (5)
  - Deafness [Unknown]
  - Deafness neurosensory [Unknown]
  - Pigmentation disorder [Recovering/Resolving]
  - Scleral pigmentation [Unknown]
  - Skin hyperpigmentation [Recovering/Resolving]
